FAERS Safety Report 7825559-3 (Version None)
Quarter: 2011Q4

REPORT INFORMATION
  Report Type: 
  Country: None (occurrence: None)
  Receive Date: 20111019
  Receipt Date: 20111014
  Transmission Date: 20120403
  Serious: Yes (Life-Threatening)
  Sender: FDA-Public Use
  Company Number: US-BRISTOL-MYERS SQUIBB COMPANY-16167660

PATIENT
  Age: 60 Year
  Sex: Female

DRUGS (5)
  1. BLINDED: PLACEBO [Suspect]
     Indication: TYPE 2 DIABETES MELLITUS
     Route: 048
     Dates: start: 20110413
  2. GLYBURIDE [Suspect]
     Indication: TYPE 2 DIABETES MELLITUS
     Dosage: 20MG(BEFORE RANDOMIZATION-04MAY2011) 10MG(04-MAY2011-CONTINUING)
     Dates: start: 20110504
  3. ASPIRIN [Concomitant]
     Dosage: ASPIRIN ={100MG(06APR2011,14JUL2011,14OCT2011)
  4. SAXAGLIPTIN [Suspect]
     Indication: TYPE 2 DIABETES MELLITUS
     Route: 048
     Dates: start: 20110413
  5. METFORMIN HCL [Suspect]
     Indication: TYPE 2 DIABETES MELLITUS
     Dosage: 2000MG(BEFORE RANDOMIZATION-04MAY2011) 1000MG(04MAY2011-CONTINUING)
     Dates: start: 20110504

REACTIONS (1)
  - HYPOGLYCAEMIA [None]
